FAERS Safety Report 7611206-2 (Version None)
Quarter: 2011Q3

REPORT INFORMATION
  Report Type: 
  Country: None (occurrence: None)
  Receive Date: 20110715
  Receipt Date: 20110702
  Transmission Date: 20111222
  Serious: Yes (Other)
  Sender: FDA-Public Use
  Company Number: JP-JNJFOC-20110704349

PATIENT
  Age: 25 Year
  Sex: Female

DRUGS (1)
  1. LISTERINE ADVANCED [Suspect]
     Indication: SUICIDE ATTEMPT
     Dosage: ^ASSUMED 1000ML^
     Route: 048
     Dates: start: 20110701

REACTIONS (3)
  - SUICIDE ATTEMPT [None]
  - INCORRECT ROUTE OF DRUG ADMINISTRATION [None]
  - SOMNOLENCE [None]
